FAERS Safety Report 4805734-2 (Version None)
Quarter: 2005Q4

REPORT INFORMATION
  Report Type: 
  Country: None (occurrence: None)
  Receive Date: 20051021
  Receipt Date: 20051012
  Transmission Date: 20060501
  Serious: Yes (Disabling, Other)
  Sender: FDA-Public Use
  Company Number: US-SP-2005-02074

PATIENT
  Age: 6 Year
  Sex: Female

DRUGS (5)
  1. IPOL [Suspect]
     Indication: IMMUNISATION
     Route: 058
     Dates: start: 20000307
  2. TUBERCULIN PPD [Suspect]
     Indication: TUBERCULIN TEST
     Route: 065
     Dates: start: 20000307
  3. MMR / MEASLES, MUMPS, RUBELLA [Suspect]
     Indication: IMMUNISATION
     Route: 058
     Dates: start: 20000307
  4. VARICELLA VIRUS VACCINE LIVE [Suspect]
     Indication: IMMUNISATION
     Route: 030
     Dates: start: 20000307
  5. TYLENOL (CAPLET) [Concomitant]

REACTIONS (10)
  - APHASIA [None]
  - ASTHENIA [None]
  - AUTISM [None]
  - DEVELOPMENTAL DELAY [None]
  - EATING DISORDER [None]
  - GAIT DISTURBANCE [None]
  - HYPOKINESIA [None]
  - HYPOTONIA [None]
  - METAL POISONING [None]
  - POSTURE ABNORMAL [None]
